FAERS Safety Report 4707402-4 (Version None)
Quarter: 2005Q3

REPORT INFORMATION
  Report Type: 
  Country: None (occurrence: None)
  Receive Date: 20050706
  Receipt Date: 20031113
  Transmission Date: 20060218
  Serious: Yes (Other)
  Sender: FDA-Public Use
  Company Number: 2003SE05191

PATIENT
  Age: 60 Year
  Sex: Male

DRUGS (2)
  1. ATACAND [Suspect]
     Indication: HYPERTENSION
     Route: 048
     Dates: start: 20031001
  2. SELO-ZOK [Concomitant]

REACTIONS (1)
  - RECTAL HAEMORRHAGE [None]
